APPROVED DRUG PRODUCT: BENDAMUSTINE HYDROCHLORIDE
Active Ingredient: BENDAMUSTINE HYDROCHLORIDE
Strength: 100MG/4ML (25MG/ML)
Dosage Form/Route: SOLUTION;INTRAVENOUS
Application: N219014 | Product #001
Applicant: DR REDDYS LABORATORIES LTD
Approved: Jul 3, 2025 | RLD: Yes | RS: No | Type: DISCN